FAERS Safety Report 4583095-4 (Version None)
Quarter: 2005Q1

REPORT INFORMATION
  Report Type: 
  Country: None (occurrence: None)
  Receive Date: 20050125
  Receipt Date: 20041020
  Transmission Date: 20050727
  Serious: No
  Sender: FDA-Public Use
  Company Number: USA041081833

PATIENT
  Age: 54 Year
  Sex: Female

DRUGS (7)
  1. FORTEO [Suspect]
     Indication: OSTEOPOROSIS
     Dates: start: 20041001
  2. VOLTAREN [Concomitant]
  3. OXYBUTYNIN [Concomitant]
  4. DESIPRAMIDE HCL [Concomitant]
  5. ZETIA [Concomitant]
  6. PREMARIN [Concomitant]
  7. FOSAMAX [Concomitant]

REACTIONS (3)
  - ARTHRALGIA [None]
  - INJECTION SITE ERYTHEMA [None]
  - PAIN [None]
